FAERS Safety Report 19743771 (Version 6)
Quarter: 2022Q1

REPORT INFORMATION
  Report Type: Report from Study
  Country: BR (occurrence: BR)
  Receive Date: 20210825
  Receipt Date: 20220324
  Transmission Date: 20220423
  Serious: Yes (Other)
  Sender: FDA-Public Use
  Company Number: NVSC2021BR175976

PATIENT
  Age: 68 Year
  Sex: Female

DRUGS (9)
  1. COSENTYX [Suspect]
     Active Substance: SECUKINUMAB
     Indication: Psoriatic arthropathy
     Dosage: 300 MG (2 SYRINGES)
     Route: 058
     Dates: start: 2021
  2. COSENTYX [Suspect]
     Active Substance: SECUKINUMAB
     Dosage: 300 MG, QD, (SYRINGE OF 150 MG) DAILY ATTACK DOSE FOR 5 DAYS
     Route: 065
     Dates: start: 20210728
  3. COSENTYX [Suspect]
     Active Substance: SECUKINUMAB
     Dosage: UNK
     Route: 065
     Dates: start: 20210729
  4. COSENTYX [Suspect]
     Active Substance: SECUKINUMAB
     Dosage: UNK
     Route: 065
     Dates: start: 20210730
  5. COSENTYX [Suspect]
     Active Substance: SECUKINUMAB
     Dosage: UNK
     Route: 065
     Dates: start: 20210731
  6. COSENTYX [Suspect]
     Active Substance: SECUKINUMAB
     Dosage: UNK
     Route: 065
     Dates: start: 20210801, end: 20210801
  7. COSENTYX [Suspect]
     Active Substance: SECUKINUMAB
     Dosage: UNK, QMO
     Route: 065
  8. COSENTYX [Suspect]
     Active Substance: SECUKINUMAB
     Dosage: UNK (2 PENS) (DAILY 0,1,2,3,4)
     Route: 065
  9. COSENTYX [Suspect]
     Active Substance: SECUKINUMAB
     Dosage: UNK, QMO
     Route: 065
     Dates: start: 20210929

REACTIONS (46)
  - Paralysis [Unknown]
  - Fracture [Unknown]
  - Application site haemorrhage [Unknown]
  - Drug dependence [Not Recovered/Not Resolved]
  - Injection site discomfort [Unknown]
  - Carpal tunnel syndrome [Unknown]
  - Ligament rupture [Unknown]
  - Limb deformity [Not Recovered/Not Resolved]
  - Joint swelling [Unknown]
  - Cerebral disorder [Unknown]
  - Memory impairment [Unknown]
  - Emotional disorder [Unknown]
  - Blood uric acid abnormal [Unknown]
  - Motor dysfunction [Unknown]
  - Fatigue [Unknown]
  - Nervousness [Unknown]
  - Wound [Unknown]
  - Malaise [Unknown]
  - Hypersomnia [Unknown]
  - Rash macular [Recovering/Resolving]
  - Mass [Unknown]
  - Peripheral swelling [Unknown]
  - Pain [Unknown]
  - Gait disturbance [Unknown]
  - Dysphonia [Unknown]
  - Pain in extremity [Unknown]
  - Asthenia [Unknown]
  - Pruritus [Unknown]
  - Skin hypertrophy [Unknown]
  - Weight decreased [Unknown]
  - Blister [Unknown]
  - Skin burning sensation [Unknown]
  - Discomfort [Not Recovered/Not Resolved]
  - Irritability [Recovered/Resolved]
  - Feeling cold [Unknown]
  - Groin pain [Unknown]
  - Psoriasis [Unknown]
  - Tremor [Recovering/Resolving]
  - Limb discomfort [Unknown]
  - Fall [Unknown]
  - Balance disorder [Unknown]
  - Depression [Not Recovered/Not Resolved]
  - Arthralgia [Unknown]
  - Product prescribing error [Unknown]
  - Inappropriate schedule of product administration [Recovered/Resolved]
  - Therapeutic response decreased [Unknown]

NARRATIVE: CASE EVENT DATE: 20210728
